FAERS Safety Report 14900539 (Version 2)
Quarter: 2019Q2

REPORT INFORMATION
  Report Type: Spontaneous
  Country: US (occurrence: US)
  Receive Date: 20180516
  Receipt Date: 20190506
  Transmission Date: 20190711
  Serious: Yes (Hospitalization)
  Sender: FDA-Public Use
  Company Number: US-PFIZER INC-2018195274

PATIENT
  Age: 67 Year
  Sex: Female
  Weight: 69.4 kg

DRUGS (2)
  1. GABAPENTIN. [Suspect]
     Active Substance: GABAPENTIN
     Indication: PAIN
     Dosage: 300 MG, 4X/DAY
  2. GABAPENTIN. [Suspect]
     Active Substance: GABAPENTIN
     Indication: BREAST CANCER STAGE IV

REACTIONS (2)
  - Product use in unapproved indication [Unknown]
  - Renal disorder [Recovered/Resolved]
